FAERS Safety Report 5889861-7 (Version None)
Quarter: 2008Q3

REPORT INFORMATION
  Report Type: 
  Country: None (occurrence: None)
  Receive Date: 20080919
  Receipt Date: 20080910
  Transmission Date: 20090109
  Serious: Yes (Hospitalization)
  Sender: FDA-Public Use
  Company Number: US-ROCHE-579876

PATIENT
  Sex: Male
  Weight: 77 kg

DRUGS (18)
  1. PEG-INTERFERON A-2A (RO 25-8310) [Suspect]
     Dosage: FORM: PRE-FILLED SYRINGE
     Route: 058
     Dates: start: 20080423
  2. PEG-INTERFERON A-2A (RO 25-8310) [Suspect]
     Route: 058
  3. RIBAVIRIN [Suspect]
     Route: 048
     Dates: start: 20080423
  4. RIBAVIRIN [Suspect]
     Route: 048
  5. PROCRIT [Suspect]
     Indication: ANAEMIA
     Dosage: FORM: VIAL
     Route: 058
     Dates: start: 20080523, end: 20080806
  6. PROCRIT [Suspect]
     Route: 058
     Dates: start: 20080807
  7. NEXIUM [Concomitant]
     Route: 048
     Dates: start: 20071126
  8. CELLCEPT [Concomitant]
     Indication: TRANSPLANT REJECTION
     Route: 048
     Dates: start: 20080609
  9. PREDNISONE TAB [Concomitant]
     Indication: PROPHYLAXIS AGAINST TRANSPLANT REJECTION
     Route: 048
     Dates: start: 20080613
  10. PROGRAF [Concomitant]
     Indication: PROPHYLAXIS AGAINST TRANSPLANT REJECTION
     Route: 048
     Dates: start: 20080613
  11. ASPIRIN [Concomitant]
     Indication: ANTICOAGULANT THERAPY
     Route: 048
     Dates: start: 20080606
  12. BACTRIM [Concomitant]
     Route: 048
     Dates: start: 20080604
  13. CALCIUM/MAGNESIUM [Concomitant]
     Route: 048
     Dates: start: 20080609
  14. FERROUS SULFATE TAB [Concomitant]
     Indication: ANAEMIA
     Route: 048
     Dates: start: 20080218
  15. PROPRANOLOL [Concomitant]
     Route: 048
     Dates: start: 20080609
  16. MAGNESIUM PLUS PROTEIN [Concomitant]
     Indication: BLOOD MAGNESIUM DECREASED
     Dosage: DRUG REPORTED AS MAG PLUS PROTEIN
     Route: 048
     Dates: start: 20080609
  17. NEUPOGEN [Concomitant]
     Indication: NEUTROPENIA
     Route: 058
     Dates: start: 20080819
  18. ASCORBIC ACID [Concomitant]
     Route: 048
     Dates: start: 20080609

REACTIONS (2)
  - CELLULITIS [None]
  - DEEP VEIN THROMBOSIS [None]
